FAERS Safety Report 13448389 (Version 11)
Quarter: 2017Q4

REPORT INFORMATION
  Report Type: Spontaneous
  Country: US (occurrence: US)
  Receive Date: 20170417
  Receipt Date: 20171110
  Transmission Date: 20180320
  Serious: Yes (Death, Hospitalization, Other)
  Sender: FDA-Public Use
  Company Number: US-ACTELION-A-NJ2017-152501

PATIENT
  Age: 67 Year
  Sex: Female
  Weight: 55.33 kg

DRUGS (6)
  1. VELETRI [Suspect]
     Active Substance: EPOPROSTENOL
     Dosage: 54.5 NG/KG, PER MIN
     Route: 042
  2. NIFEDIPINE. [Concomitant]
     Active Substance: NIFEDIPINE
  3. VELETRI [Suspect]
     Active Substance: EPOPROSTENOL
     Indication: PULMONARY ARTERIAL HYPERTENSION
     Dosage: 51.6 NG/KG, PER MIN
     Route: 042
  4. VELETRI [Suspect]
     Active Substance: EPOPROSTENOL
     Dosage: 27 NG/KG, PER MIN
     Route: 042
  5. OPSUMIT [Suspect]
     Active Substance: MACITENTAN
     Indication: PULMONARY ARTERIAL HYPERTENSION
     Dosage: 10 MG, QD
     Route: 048
  6. WARFARIN [Concomitant]
     Active Substance: WARFARIN

REACTIONS (18)
  - Asthenia [Unknown]
  - Malaise [Unknown]
  - Death [Fatal]
  - Back pain [Unknown]
  - Cardiac failure [Unknown]
  - Catheter site inflammation [Unknown]
  - Formication [Unknown]
  - Tremor [Unknown]
  - Device dislocation [Unknown]
  - Fall [Unknown]
  - Bladder mass [Unknown]
  - Pulmonary arterial hypertension [Unknown]
  - Headache [Not Recovered/Not Resolved]
  - Diarrhoea [Not Recovered/Not Resolved]
  - Catheter site thrombosis [Unknown]
  - Catheter site haemorrhage [Unknown]
  - Haemoglobin decreased [Unknown]
  - Palliative care [Not Recovered/Not Resolved]

NARRATIVE: CASE EVENT DATE: 20170724
